FAERS Safety Report 6601053-2 (Version None)
Quarter: 2010Q1

REPORT INFORMATION
  Report Type: 
  Country: None (occurrence: None)
  Receive Date: 20100225
  Receipt Date: 20100216
  Transmission Date: 20100710
  Serious: Yes (Hospitalization, Other)
  Sender: FDA-Public Use
  Company Number: DE-JNJFOC-20100206438

PATIENT
  Age: 39 Year
  Sex: Male
  Weight: 75 kg

DRUGS (4)
  1. DIPIPERON [Suspect]
     Indication: DRUG USE FOR UNKNOWN INDICATION
     Route: 048
     Dates: start: 20091116, end: 20091205
  2. HALDOL [Suspect]
     Indication: DRUG USE FOR UNKNOWN INDICATION
     Route: 048
     Dates: start: 20091117, end: 20091210
  3. AKINETON [Suspect]
     Indication: DRUG USE FOR UNKNOWN INDICATION
     Route: 048
     Dates: start: 20091207, end: 20091212
  4. LEPONEX [Concomitant]
     Indication: SCHIZOPHRENIA
     Route: 048
     Dates: start: 20091117

REACTIONS (1)
  - HEPATITIS ACUTE [None]
